FAERS Safety Report 4382248-8 (Version None)
Quarter: 2004Q2

REPORT INFORMATION
  Report Type: 
  Country: None (occurrence: None)
  Receive Date: 20040615
  Receipt Date: 20040603
  Transmission Date: 20050107
  Serious: Yes (Death)
  Sender: FDA-Public Use
  Company Number: 163-20785-04040530

PATIENT
  Age: 63 Year
  Sex: Male

DRUGS (2)
  1. THALOMID [Suspect]
     Indication: LEUKAEMIA PLASMACYTIC
     Dosage: 200 MG, DAILY, ORAL
     Route: 048
     Dates: start: 20040201, end: 20040329
  2. THALOMID [Suspect]
     Indication: MULTIPLE MYELOMA
     Dosage: 200 MG, DAILY, ORAL
     Route: 048
     Dates: start: 20040201, end: 20040329

REACTIONS (4)
  - CARDIAC FAILURE CONGESTIVE [None]
  - CHRONIC OBSTRUCTIVE AIRWAYS DISEASE [None]
  - MALIGNANT NEOPLASM PROGRESSION [None]
  - MULTIPLE MYELOMA [None]
